FAERS Safety Report 7960224-3 (Version None)
Quarter: 2011Q4

REPORT INFORMATION
  Report Type: 
  Country: None (occurrence: None)
  Receive Date: 20111206
  Receipt Date: 20111201
  Transmission Date: 20120403
  Serious: Yes (Death, Hospitalization, Other)
  Sender: FDA-Public Use
  Company Number: GB-CEPHALON-2011005033

PATIENT
  Sex: Female

DRUGS (3)
  1. THALIDOMIDE [Suspect]
     Route: 048
     Dates: start: 20110816, end: 20110820
  2. BENDAMUSTINE HCL [Suspect]
     Route: 042
     Dates: start: 20110816
  3. DEXAMETHASONE [Suspect]
     Route: 048
     Dates: start: 20110816, end: 20110816

REACTIONS (7)
  - BACK PAIN [None]
  - ARTHRALGIA [None]
  - DEATH [None]
  - COUGH [None]
  - CHEST PAIN [None]
  - ABDOMINAL PAIN UPPER [None]
  - CEREBRAL DISORDER [None]
